FAERS Safety Report 20559498 (Version 1)
Quarter: 2022Q1

REPORT INFORMATION
  Report Type: Spontaneous
  Country: FR (occurrence: None)
  Receive Date: 20220307
  Receipt Date: 20220307
  Transmission Date: 20220423
  Serious: Yes (Disabling)
  Sender: FDA-Public Use
  Company Number: 2022A092629

PATIENT
  Age: 60 Year
  Sex: Female
  Weight: 70 kg

DRUGS (2)
  1. OLAPARIB [Suspect]
     Active Substance: OLAPARIB
     Indication: Ovarian cancer
     Route: 048
     Dates: start: 201909
  2. PLAQUENIL [Suspect]
     Active Substance: HYDROXYCHLOROQUINE SULFATE
     Indication: SLE arthritis
     Route: 065

REACTIONS (4)
  - Oral disorder [Not Recovered/Not Resolved]
  - Skin erosion [Not Recovered/Not Resolved]
  - Buttock injury [Not Recovered/Not Resolved]
  - Oral pain [Not Recovered/Not Resolved]

NARRATIVE: CASE EVENT DATE: 20210101
